FAERS Safety Report 4872955-2 (Version None)
Quarter: 2006Q1

REPORT INFORMATION
  Report Type: 
  Country: None (occurrence: None)
  Receive Date: 20060105
  Receipt Date: 20050411
  Transmission Date: 20060701
  Serious: Yes (Other)
  Sender: FDA-Public Use
  Company Number: US-BRISTOL-MYERS SQUIBB COMPANY-12930145

PATIENT
  Age: 45 Year
  Sex: Female

DRUGS (2)
  1. SERZONE [Suspect]
     Route: 048
     Dates: start: 19970301
  2. SYNTHROID [Concomitant]
     Indication: BASEDOW'S DISEASE

REACTIONS (4)
  - CRYING [None]
  - HEPATOCELLULAR DAMAGE [None]
  - NIGHTMARE [None]
  - TREMOR [None]
